FAERS Safety Report 8758810 (Version 1)
Quarter: 2012Q4

REPORT INFORMATION
  Report Type: Spontaneous
  Country: US (occurrence: None)
  Receive Date: 20120828
  Receipt Date: 20120828
  Transmission Date: 20130627
  Serious: Yes (Disabling)
  Sender: FDA-Public Use
  Company Number: None

PATIENT
  Age: 40 Year
  Sex: Male
  Weight: 81.65 kg

DRUGS (1)
  1. DURAGESIC [Suspect]
     Dates: start: 20120623, end: 20120623

REACTIONS (4)
  - Device leakage [None]
  - Mental disorder [None]
  - Impaired work ability [None]
  - Ill-defined disorder [None]
